FAERS Safety Report 8547909 (Version 2)
Quarter: 2012Q4

REPORT INFORMATION
  Report Type: 
  Country: SE (occurrence: SE)
  Receive Date: 20120504
  Receipt Date: 20120917
  Transmission Date: 20130627
  Serious: Yes (Other)
  Sender: FDA-Public Use
  Company Number: SE-ABBOTT-12P-150-0931093-00

PATIENT
  Sex: Female

DRUGS (1)
  1. ERGENYL [Suspect]
     Indication: EPILEPSY
     Dates: end: 2010

REACTIONS (5)
  - Amnesia [Unknown]
  - Epilepsy [Unknown]
  - Disturbance in attention [Unknown]
  - Fatigue [Unknown]
  - Depression [Unknown]
